FAERS Safety Report 15282403 (Version 3)
Quarter: 2018Q3

REPORT INFORMATION
  Report Type: Report from Study
  Country: CN (occurrence: CN)
  Receive Date: 20180816
  Receipt Date: 20180926
  Transmission Date: 20181010
  Serious: Yes (Hospitalization)
  Sender: FDA-Public Use
  Company Number: CN-BRISTOL-MYERS SQUIBB COMPANY-BMS-2018-074306

PATIENT
  Age: 70 Year
  Sex: Male
  Weight: 51 kg

DRUGS (3)
  1. BLINDED NIVOLUMAB [Suspect]
     Active Substance: NIVOLUMAB
     Indication: SMALL CELL LUNG CANCER
     Dosage: 240 MG, UNK
     Route: 042
     Dates: start: 20180718
  2. BLINDED PLACEBO [Suspect]
     Active Substance: INVESTIGATIONAL PRODUCT
     Indication: SMALL CELL LUNG CANCER
     Dosage: 240 MG, UNK
     Route: 042
     Dates: start: 20180718
  3. BLINDED IPILIMUMAB [Suspect]
     Active Substance: IPILIMUMAB
     Indication: SMALL CELL LUNG CANCER
     Dosage: 240 MG, UNK
     Route: 042
     Dates: start: 20180718

REACTIONS (1)
  - Sinus tachycardia [Recovered/Resolved]

NARRATIVE: CASE EVENT DATE: 20180808
